FAERS Safety Report 4626962-5 (Version None)
Quarter: 2005Q2

REPORT INFORMATION
  Report Type: 
  Country: None (occurrence: None)
  Receive Date: 20050405
  Receipt Date: 20050329
  Transmission Date: 20051028
  Serious: Yes (Death, Hospitalization)
  Sender: FDA-Public Use
  Company Number: PHBS2005IT04463

PATIENT
  Age: 40 Year
  Sex: Female

DRUGS (2)
  1. LIOMETACEN [Suspect]
     Indication: PAIN
     Dosage: UNK, PRN
  2. SANDIMMUNE [Suspect]
     Indication: JUVENILE ARTHRITIS
     Dosage: 150-200 MG/D
     Route: 048

REACTIONS (7)
  - ANURIA [None]
  - BLOOD CREATININE INCREASED [None]
  - DEATH [None]
  - DIALYSIS [None]
  - DRUG INTERACTION [None]
  - RENAL FAILURE [None]
  - SEPSIS [None]
